FAERS Safety Report 5771773-0 (Version None)
Quarter: 2008Q2

REPORT INFORMATION
  Report Type: 
  Country: None (occurrence: None)
  Receive Date: 20080601
  Receipt Date: 20080228
  Transmission Date: 20081010
  Serious: No
  Sender: FDA-Public Use
  Company Number: US200802006672

PATIENT
  Age: 63 Year
  Sex: Female

DRUGS (7)
  1. BYETTA [Suspect]
     Indication: INSULIN-REQUIRING TYPE 2 DIABETES MELLITUS
     Dosage: 5 UG, 2/D, SUBCUTANEOUS
     Route: 058
     Dates: start: 20080201
  2. NOVOLIN N [Concomitant]
  3. LANTUS [Concomitant]
  4. ZANTAC [Concomitant]
  5. ASPIRIN [Concomitant]
  6. AMITRIPTLINE HYDROCHLORIDE TAB [Concomitant]
  7. PRAVASTATIN [Concomitant]

REACTIONS (2)
  - BLOOD GLUCOSE ABNORMAL [None]
  - INCORRECT DOSE ADMINISTERED [None]
